FAERS Safety Report 24641363 (Version 1)
Quarter: 2024Q4

REPORT INFORMATION
  Report Type: Report from Study
  Country: US (occurrence: US)
  Receive Date: 20241120
  Receipt Date: 20241120
  Transmission Date: 20250114
  Serious: Yes (Other)
  Sender: SUNOVION
  Company Number: US-SMPA-2024SPA004950

PATIENT

DRUGS (2)
  1. ORGOVYX [Suspect]
     Active Substance: RELUGOLIX
     Indication: Prostate cancer
     Dosage: 360 MG
     Route: 048
     Dates: start: 20241021, end: 20241021
  2. ORGOVYX [Suspect]
     Active Substance: RELUGOLIX
     Dosage: 120 MG, QD
     Route: 048
     Dates: start: 20241022

REACTIONS (6)
  - Renal impairment [Unknown]
  - Sleep disorder [Unknown]
  - Blood glucose abnormal [Unknown]
  - Hyperhidrosis [Unknown]
  - Headache [Unknown]
  - Hot flush [Unknown]
